APPROVED DRUG PRODUCT: PROTRIPTYLINE HYDROCHLORIDE
Active Ingredient: PROTRIPTYLINE HYDROCHLORIDE
Strength: 10MG
Dosage Form/Route: TABLET;ORAL
Application: A090462 | Product #002 | TE Code: AB
Applicant: SIGMAPHARM LABORATORIES LLC
Approved: May 3, 2010 | RLD: No | RS: No | Type: RX